FAERS Safety Report 5193876-4 (Version None)
Quarter: 2006Q4

REPORT INFORMATION
  Report Type: 
  Country: None (occurrence: None)
  Receive Date: 20061222
  Receipt Date: 20061211
  Transmission Date: 20070319
  Serious: Yes (Hospitalization, Other)
  Sender: FDA-Public Use
  Company Number: 2005092310

PATIENT
  Age: 47 Year
  Sex: Male

DRUGS (3)
  1. NEURONTIN [Suspect]
     Indication: BACK PAIN
     Dosage: 300 MG
     Dates: start: 20000721, end: 20040831
  2. NEURONTIN [Suspect]
     Indication: INSOMNIA
     Dosage: 300 MG
     Dates: start: 20000721, end: 20040831
  3. NEURONTIN [Suspect]
     Indication: PAIN
     Dosage: 300 MG
     Dates: start: 20000721, end: 20040831

REACTIONS (12)
  - CONDITION AGGRAVATED [None]
  - DEPRESSION [None]
  - DRUG INEFFECTIVE [None]
  - FEELING OF DESPAIR [None]
  - FEELINGS OF WORTHLESSNESS [None]
  - HALLUCINATION, VISUAL [None]
  - INSOMNIA [None]
  - INTENTIONAL SELF-INJURY [None]
  - LACERATION [None]
  - MENTAL DISORDER [None]
  - PAIN [None]
  - SUICIDE ATTEMPT [None]
